FAERS Safety Report 21896630 (Version 1)
Quarter: 2023Q1

REPORT INFORMATION
  Report Type: Spontaneous
  Country: NL (occurrence: NL)
  Receive Date: 20230123
  Receipt Date: 20230123
  Transmission Date: 20230418
  Serious: Yes (Death, Hospitalization, Other)
  Sender: FDA-Public Use
  Company Number: None

PATIENT
  Sex: Male
  Weight: 62.5 kg

DRUGS (12)
  1. CYCLOPHOSPHAMIDE [Suspect]
     Active Substance: CYCLOPHOSPHAMIDE
     Indication: IgA nephropathy
     Dosage: 1 (DF) DOSAGE FORM, EVERY OTHER DAY 1X1 TABLETS, EVERY OTHER DAY 1X2 TABLETS
     Route: 065
     Dates: start: 20210920
  2. PANTOPRAZOLE [Concomitant]
     Active Substance: PANTOPRAZOLE
     Indication: Product used for unknown indication
     Dosage: GASTRO-RESISTANT, 20 MG (MILLIGRAM)
     Route: 065
  3. PREDNISONE [Concomitant]
     Active Substance: PREDNISONE
     Indication: Product used for unknown indication
     Dosage: TABLET, 20 MG (MILLIGRAM)
     Route: 065
  4. FUROSEMIDE [Concomitant]
     Active Substance: FUROSEMIDE
     Indication: Product used for unknown indication
     Dosage: TABLET, 40 MG (MILLIGRAM)
     Route: 065
  5. COTRIMOXAZOLE [Concomitant]
     Active Substance: SULFAMETHOXAZOLE\TRIMETHOPRIM
     Indication: Product used for unknown indication
     Dosage: (480 TABLET 80/400MG)TABLET, 80/400 MG (MILLIGRAM)
     Route: 065
  6. ACETAMINOPHEN [Concomitant]
     Active Substance: ACETAMINOPHEN
     Indication: Product used for unknown indication
     Dosage: TABLET, 1000 MG (MILLIGRAM)
     Route: 065
  7. METOPROLOL SUCCINATE [Concomitant]
     Active Substance: METOPROLOL SUCCINATE
     Indication: Product used for unknown indication
     Dosage: EXTENDED-RELEASE TABLET, 25 MG (MILLIGRAMS)
     Route: 065
  8. SIMVASTATIN [Concomitant]
     Active Substance: SIMVASTATIN
     Indication: Product used for unknown indication
     Dosage: FILM-COATED TABLET, 40 MG (MILLIGRAMS)
     Route: 065
  9. ALBUTEROL [Concomitant]
     Active Substance: ALBUTEROL
     Indication: Product used for unknown indication
     Dosage: NEBULIZER SOLUTION 1/0.2 MG/ML (MILLIGRAM PER MILLILITER)
     Route: 065
  10. CEFUROXIME [Concomitant]
     Active Substance: CEFUROXIME
     Indication: Product used for unknown indication
     Dosage: SOLUTION FOR INFUSION, 15 MG/ML (MILLIGRAMS PER MILLILITER)
     Route: 065
  11. INSULIN ASPART [Concomitant]
     Active Substance: INSULIN ASPART
     Indication: Product used for unknown indication
     Dosage: (100 U/ML, 100 U/ML 10 ML VIAL), SOLUTION FOR INJECTION, 100 UNITS/ML (UNITS PER MILLILITER)
     Route: 065
  12. DALTEPARIN [Concomitant]
     Active Substance: DALTEPARIN
     Indication: Product used for unknown indication
     Dosage: (10,000 IU/ML / FRAGMIN, 10000 SOLUTION FOR INJECTION 10,000 IU/ML, 1 ML AMPOULE), SOLUTION FOR INJE
     Route: 065

REACTIONS (2)
  - Mucosal inflammation [Fatal]
  - Erythema multiforme [Fatal]
